FAERS Safety Report 16498349 (Version 2)
Quarter: 2019Q4

REPORT INFORMATION
  Report Type: Spontaneous
  Country: US (occurrence: US)
  Receive Date: 20190629
  Receipt Date: 20191010
  Transmission Date: 20200122
  Serious: No
  Sender: FDA-Public Use
  Company Number: US-TEVA-2019-US-1061537

PATIENT
  Sex: Male

DRUGS (1)
  1. BUPRENORPHINE TRANSDERMAL PATCHES [Suspect]
     Active Substance: BUPRENORPHINE
     Dosage: BUPRENORPHINE TRANSDERMAL PATCHES 20 MCG / HOUR
     Route: 062

REACTIONS (3)
  - Product adhesion issue [Unknown]
  - Pain [Unknown]
  - Drug ineffective [Unknown]
